FAERS Safety Report 23426587 (Version 1)
Quarter: 2024Q1

REPORT INFORMATION
  Report Type: Report from Study
  Country: US (occurrence: US)
  Receive Date: 20240122
  Receipt Date: 20240122
  Transmission Date: 20240410
  Serious: No
  Sender: FDA-Public Use
  Company Number: US-ALXN-202401USA001061US

PATIENT

DRUGS (1)
  1. STRENSIQ [Suspect]
     Active Substance: ASFOTASE ALFA
     Indication: Product used for unknown indication
     Dosage: UNK
     Route: 065

REACTIONS (14)
  - Peripheral swelling [Unknown]
  - Arthralgia [Unknown]
  - Pelvic pain [Unknown]
  - Injection site discolouration [Unknown]
  - Tendonitis [Unknown]
  - Calcinosis [Unknown]
  - Scar [Unknown]
  - Gait disturbance [Unknown]
  - Intervertebral disc degeneration [Unknown]
  - Globulins increased [Unknown]
  - Vitamin D decreased [Unknown]
  - Blood urea decreased [Unknown]
  - Blood creatinine decreased [Unknown]
  - Albumin globulin ratio decreased [Unknown]

NARRATIVE: CASE EVENT DATE: 20230605
